FAERS Safety Report 26122280 (Version 1)
Quarter: 2025Q4

REPORT INFORMATION
  Report Type: Spontaneous
  Country: GB (occurrence: GB)
  Receive Date: 20251204
  Receipt Date: 20251204
  Transmission Date: 20260119
  Serious: No
  Sender: PFIZER
  Company Number: GB-PFIZER INC-202500233026

PATIENT
  Age: 77 Year
  Sex: Male

DRUGS (1)
  1. GENOTROPIN [Suspect]
     Active Substance: SOMATROPIN
     Dosage: 0.3 MG
     Route: 058

REACTIONS (2)
  - Liquid product physical issue [Recovered/Resolved]
  - Device leakage [Recovered/Resolved]
